FAERS Safety Report 4804539-6 (Version None)
Quarter: 2005Q4

REPORT INFORMATION
  Report Type: 
  Country: None (occurrence: None)
  Receive Date: 20051017
  Receipt Date: 20050914
  Transmission Date: 20060501
  Serious: Yes (Hospitalization)
  Sender: FDA-Public Use
  Company Number: 2005RR-00851

PATIENT
  Age: 79 Year
  Sex: Female

DRUGS (7)
  1. ASPIRIN [Suspect]
     Dosage: 75 MG, QD, ORAL
     Route: 048
  2. TRIMETHOPRIM TABLET 100 MG (TRIMETHOPRIM) [Concomitant]
  3. PERINDOPRIL [Concomitant]
  4. SALBUTAMOL TABLETS BP 2MG (SALBUTAMOL) [Concomitant]
  5. SIMVASTATIN TABLET 40 MG (SIMVASTATIN) [Concomitant]
  6. BENDROFLUMETHIAZIDE [Concomitant]
  7. GLICLAZIDE [Concomitant]

REACTIONS (5)
  - ABDOMINAL PAIN [None]
  - DIVERTICULUM OESOPHAGEAL [None]
  - ERYTHEMA MULTIFORME [None]
  - FAECES DISCOLOURED [None]
  - GASTRITIS [None]
